FAERS Safety Report 7579332-4 (Version None)
Quarter: 2011Q2

REPORT INFORMATION
  Report Type: 
  Country: None (occurrence: None)
  Receive Date: 20110628
  Receipt Date: 20110622
  Transmission Date: 20111010
  Serious: Yes (Death)
  Sender: FDA-Public Use
  Company Number: US-CELGENEUS-163-21880-11062885

PATIENT
  Sex: Male

DRUGS (8)
  1. RESTORIL [Concomitant]
     Route: 065
  2. REVLIMID [Suspect]
     Indication: MULTIPLE MYELOMA
     Dosage: 10 MILLIGRAM
     Route: 048
     Dates: start: 20100801
  3. ZOMETA [Concomitant]
     Route: 065
  4. OXYCODONE HCL [Concomitant]
     Route: 065
  5. ASCORBIC ACID [Concomitant]
     Route: 065
  6. DECADRON [Concomitant]
     Route: 065
  7. ARANESP [Concomitant]
     Route: 065
  8. REVLIMID [Suspect]
     Dosage: 15 MILLIGRAM
     Route: 048
     Dates: start: 20110601, end: 20110601

REACTIONS (3)
  - DEATH [None]
  - DEHYDRATION [None]
  - CONFUSIONAL STATE [None]
